FAERS Safety Report 6127986-1 (Version None)
Quarter: 2009Q1

REPORT INFORMATION
  Report Type: 
  Country: None (occurrence: None)
  Receive Date: 20090323
  Receipt Date: 20090311
  Transmission Date: 20090719
  Serious: Yes (Death, Disabling, Other)
  Sender: FDA-Public Use
  Company Number: US-BAYER-US-2007-006378

PATIENT
  Age: 43 Year
  Sex: Male

DRUGS (47)
  1. MAGNEVIST [Suspect]
     Indication: NUCLEAR MAGNETIC RESONANCE IMAGING
     Dosage: UNK, UNK
     Route: 042
     Dates: start: 20000426, end: 20000426
  2. MAGNEVIST [Suspect]
     Route: 042
     Dates: start: 20001026, end: 20001026
  3. MAGNEVIST [Suspect]
     Dosage: UNIT DOSE: 60 ML
     Route: 042
     Dates: start: 20020505, end: 20020505
  4. MAGNEVIST [Suspect]
     Dosage: UNIT DOSE: 20 ML
     Route: 042
     Dates: start: 20021111, end: 20021111
  5. MAGNEVIST [Suspect]
     Dosage: UNIT DOSE: 20 ML
     Route: 042
     Dates: start: 20030828, end: 20030828
  6. MAGNEVIST [Suspect]
     Dosage: UNIT DOSE: 20 ML
     Route: 042
     Dates: start: 20030918, end: 20030918
  7. MAGNEVIST [Suspect]
     Dosage: UNIT DOSE: 60 ML
     Route: 042
     Dates: start: 20060427, end: 20060427
  8. MAGNEVIST [Suspect]
     Dosage: UNIT DOSE: 20 ML
     Route: 042
     Dates: start: 20011227, end: 20011227
  9. MAGNEVIST [Suspect]
     Dosage: UNIT DOSE: 20 ML
     Route: 042
     Dates: start: 20030827, end: 20030827
  10. MAGNEVIST [Suspect]
     Dosage: UNIT DOSE: 20 ML
     Route: 042
     Dates: start: 20050801, end: 20050801
  11. MAGNEVIST [Suspect]
     Dosage: UNIT DOSE: 20 ML
     Route: 042
     Dates: start: 20060608, end: 20060608
  12. MAGNEVIST [Suspect]
     Dosage: UNIT DOSE: 20 ML
     Route: 042
     Dates: start: 20030917, end: 20030917
  13. MAGNEVIST [Suspect]
     Dosage: UNK, UNK
     Route: 042
     Dates: start: 20020519, end: 20020519
  14. OMNISCAN [Suspect]
     Indication: NUCLEAR MAGNETIC RESONANCE IMAGING
  15. OPTIMARK [Suspect]
     Indication: NUCLEAR MAGNETIC RESONANCE IMAGING
  16. MULTIHANCE [Suspect]
     Indication: NUCLEAR MAGNETIC RESONANCE IMAGING
  17. PROHANCE [Suspect]
     Indication: NUCLEAR MAGNETIC RESONANCE IMAGING
  18. PHOSLO [Concomitant]
     Dosage: UNIT DOSE: 2001 MG
     Route: 048
  19. RENAGEL [Concomitant]
     Dosage: UNIT DOSE: 3200 MG
     Route: 048
  20. RENAGEL [Concomitant]
     Dosage: UNIT DOSE: 3200 MG
  21. LIPITOR [Concomitant]
     Dosage: UNIT DOSE: 80 MG
     Route: 048
  22. CELEXA [Concomitant]
     Dosage: UNIT DOSE: 20 MG
     Route: 048
  23. BENADRYL ^PFIZER WARNER-LAMBERT^ [Concomitant]
     Indication: PRURITUS
     Dosage: UNIT DOSE: 25 MG
     Route: 048
  24. NEURONTIN [Concomitant]
     Dosage: 300 MG AFTER HD ON HD DAYS ONLY
     Route: 048
  25. NEURONTIN [Concomitant]
     Dosage: 600 MG, AFTER EACH DIALYSIS
  26. GEMFIBROZIL [Concomitant]
     Dosage: UNIT DOSE: 600 MG
  27. INSULIN GLARGINE [Concomitant]
     Dosage: 6 UNITS QHS
     Route: 058
  28. INSULIN GLARGINE [Concomitant]
     Dosage: 15 UNK, BED T.
     Route: 058
  29. ATIVAN [Concomitant]
     Dosage: 1 MG BEFORE DIALYSIS PRN
     Route: 048
  30. METHADONE HCL [Concomitant]
     Indication: PAIN IN EXTREMITY
     Dosage: UNIT DOSE: 5 MG
     Route: 048
  31. TOPROL-XL [Concomitant]
     Dosage: UNIT DOSE: 100 MG
     Route: 048
  32. NEPHROCAPS [Concomitant]
     Dosage: 1 CAP(S), 1X/DAY [DAILY DOSE: 1 CAP(S)]
     Route: 048
  33. PERCOCET [Concomitant]
     Dosage: 1 TAB(S), Q6H PRN
     Route: 048
  34. RANITIDINE [Concomitant]
     Dosage: UNIT DOSE: 150 MG
     Route: 048
  35. REQUIP [Concomitant]
     Dosage: UNIT DOSE: 2 MG
     Route: 048
  36. COUMADIN [Concomitant]
     Dosage: UNIT DOSE: 7.5 MG
     Route: 048
  37. COUMADIN [Concomitant]
     Dosage: 4 MG, QPM [DAILY DOSE: 4 MG]
     Route: 048
  38. COUMADIN [Concomitant]
     Dosage: UNIT DOSE: 5 MG
     Route: 048
  39. LISINOPRIL [Concomitant]
     Dosage: UNIT DOSE: 40 MG
     Route: 048
  40. LISINOPRIL [Concomitant]
     Dosage: UNIT DOSE: 5 MG
  41. INSULIN, REGULAR [Concomitant]
     Dosage: SLIDING SCALE AC AND HS
     Route: 058
  42. CLONIDINE [Concomitant]
     Dosage: UNIT DOSE: 0.2 MG
     Route: 062
  43. ULTRAVIST 300 [Concomitant]
     Indication: FISTULOGRAM
     Dosage: UNIT DOSE: 120 ML
     Dates: start: 20070309, end: 20070309
  44. OXYCODONE HCL [Concomitant]
     Dosage: UNIT DOSE: 40 MG
     Route: 048
  45. OXYCODONE HCL [Concomitant]
     Dosage: UNIT DOSE: 10 MG
  46. QUININE SULFATE [Concomitant]
     Dosage: UNIT DOSE: 325 MG
  47. LANTUS [Concomitant]
     Dosage: 15 UNITS QHS
     Route: 058

REACTIONS (22)
  - ANXIETY [None]
  - EMOTIONAL DISTRESS [None]
  - ERYTHEMA [None]
  - EXCORIATION [None]
  - GENERAL PHYSICAL HEALTH DETERIORATION [None]
  - JOINT RANGE OF MOTION DECREASED [None]
  - MENTAL STATUS CHANGES [None]
  - MOTOR DYSFUNCTION [None]
  - NEPHROGENIC SYSTEMIC FIBROSIS [None]
  - OEDEMA PERIPHERAL [None]
  - PAIN [None]
  - PAIN IN EXTREMITY [None]
  - PETECHIAE [None]
  - PRURITUS [None]
  - RASH GENERALISED [None]
  - SCAB [None]
  - SKIN EXFOLIATION [None]
  - SKIN FIBROSIS [None]
  - SKIN INDURATION [None]
  - SKIN TIGHTNESS [None]
  - SWELLING [None]
  - VENOUS INSUFFICIENCY [None]
